FAERS Safety Report 17433104 (Version 1)
Quarter: 2020Q1

REPORT INFORMATION
  Report Type: Spontaneous
  Country: DK (occurrence: DK)
  Receive Date: 20200219
  Receipt Date: 20200219
  Transmission Date: 20200409
  Serious: Yes (Other)
  Sender: FDA-Public Use
  Company Number: DK-AUROBINDO-AUR-APL-2020-007540

PATIENT
  Age: 44 Year
  Sex: Male

DRUGS (11)
  1. AMLODIPINE [Suspect]
     Active Substance: AMLODIPINE BESYLATE
     Indication: HYPERTENSION
     Dosage: UNK
     Route: 048
     Dates: start: 20100208
  2. RANID [Suspect]
     Active Substance: RANITIDINE
     Indication: HYPERTENSION
     Dosage: UNK
     Route: 048
  3. HJERTEMAGNYL [Concomitant]
     Indication: ANTICOAGULANT THERAPY
     Dosage: 75 MILLIGRAM, ONCE A DAY
     Route: 048
     Dates: start: 20140505
  4. EZETIMIBE. [Concomitant]
     Active Substance: EZETIMIBE
     Indication: HYPERCHOLESTEROLAEMIA
     Dosage: 10 MILLIGRAM, ONCE A DAY
     Route: 048
     Dates: start: 20150819
  5. RAMIPRIL TABLET [Suspect]
     Active Substance: RAMIPRIL
     Indication: HYPERTENSION
     Dosage: UNK
     Route: 048
     Dates: start: 20110216
  6. CORODIL (ENALAPRIL MALEATE) [Suspect]
     Active Substance: ENALAPRIL MALEATE
     Indication: HYPERTENSION
     Dosage: UNK
     Route: 048
  7. THYCAPZOL [Concomitant]
     Active Substance: METHIMAZOLE
     Indication: HYPERTHYROIDISM
     Dosage: 5 MILLIGRAM, ONCE A DAY
     Route: 048
     Dates: start: 2016
  8. PREDNISOLONE. [Concomitant]
     Active Substance: PREDNISOLONE
     Indication: POLYMYALGIA RHEUMATICA
     Dosage: UNK
     Route: 065
  9. ATORVASTATIN [Concomitant]
     Active Substance: ATORVASTATIN
     Indication: HYPERCHOLESTEROLAEMIA
     Dosage: 10 MILLIGRAM, ONCE A DAY
     Route: 048
     Dates: start: 20150424
  10. SIMVASTATIN. [Concomitant]
     Active Substance: SIMVASTATIN
     Indication: HYPERCHOLESTEROLAEMIA
     Dosage: UNK
     Route: 048
     Dates: start: 2005, end: 2012
  11. CENTYL MITE MED KALIUMKLORID [Concomitant]
     Indication: DIURETIC THERAPY
     Dosage: UNK
     Route: 048
     Dates: start: 20100301

REACTIONS (5)
  - Chronic kidney disease [Not Recovered/Not Resolved]
  - Protein urine present [Unknown]
  - Fatigue [Unknown]
  - Blood creatinine increased [Unknown]
  - Myoglobin blood increased [Unknown]

NARRATIVE: CASE EVENT DATE: 2007
